FAERS Safety Report 7832628-0 (Version None)
Quarter: 2011Q4

REPORT INFORMATION
  Report Type: 
  Country: None (occurrence: None)
  Receive Date: 20111024
  Receipt Date: 20111017
  Transmission Date: 20120403
  Serious: No
  Sender: FDA-Public Use
  Company Number: US-BIOGENIDEC-2011BI030318

PATIENT
  Sex: Male

DRUGS (1)
  1. TYSABRI [Suspect]
     Indication: CROHN'S DISEASE
     Route: 042
     Dates: start: 20100503, end: 20110719

REACTIONS (11)
  - HERPES ZOSTER [None]
  - MYALGIA [None]
  - ARTHRALGIA [None]
  - VOMITING [None]
  - NEUROPATHY PERIPHERAL [None]
  - HEADACHE [None]
  - FATIGUE [None]
  - ABDOMINAL DISTENSION [None]
  - GASTROOESOPHAGEAL REFLUX DISEASE [None]
  - NAUSEA [None]
  - HERPES SIMPLEX [None]
